FAERS Safety Report 10776208 (Version 1)
Quarter: 2015Q1

REPORT INFORMATION
  Report Type: Spontaneous
  Country: US (occurrence: None)
  Receive Date: 20150205
  Receipt Date: 20150205
  Transmission Date: 20150721
  Serious: No
  Sender: FDA-Public Use
  Company Number: None

PATIENT

DRUGS (1)
  1. LACTULOSE. [Suspect]
     Active Substance: LACTULOSE
     Dosage: TYPE: UNIT DOSE CUP, SIZE: 30 ML

REACTIONS (2)
  - Product label confusion [None]
  - Product expiration date issue [None]
